FAERS Safety Report 25126410 (Version 1)
Quarter: 2025Q1

REPORT INFORMATION
  Report Type: Spontaneous
  Country: BR (occurrence: BR)
  Receive Date: 20250327
  Receipt Date: 20250327
  Transmission Date: 20250408
  Serious: Yes (Other)
  Sender: UCB
  Company Number: BR-UCBSA-2025017355

PATIENT
  Sex: Male

DRUGS (2)
  1. KEPPRA XR [Suspect]
     Active Substance: LEVETIRACETAM
     Indication: Dementia
     Dosage: 500 MILLIGRAM, 2X/DAY (BID)
     Dates: start: 2024
  2. KEPPRA XR [Suspect]
     Active Substance: LEVETIRACETAM
     Indication: Off label use
     Dosage: 750 MILLIGRAM, ONCE DAILY (QD)

REACTIONS (2)
  - Seizure [Unknown]
  - Off label use [Unknown]
